FAERS Safety Report 6191581-9 (Version None)
Quarter: 2009Q2

REPORT INFORMATION
  Report Type: 
  Country: None (occurrence: None)
  Receive Date: 20090513
  Receipt Date: 20090508
  Transmission Date: 20091009
  Serious: Yes (Death)
  Sender: FDA-Public Use
  Company Number: AX239-09-0211

PATIENT
  Age: 57 Year
  Sex: Female

DRUGS (2)
  1. ABRAXANE [Suspect]
     Indication: BREAST CANCER METASTATIC
     Dosage: (190 MG)
     Dates: start: 20090318
  2. LAPATINIB [Suspect]
     Indication: BREAST CANCER METASTATIC
     Dosage: (1000 MG)
     Dates: start: 20090318

REACTIONS (2)
  - CARDIAC ARREST [None]
  - UNRESPONSIVE TO STIMULI [None]
